FAERS Safety Report 4932148-7 (Version None)
Quarter: 2006Q1

REPORT INFORMATION
  Report Type: 
  Country: None (occurrence: None)
  Receive Date: 20060303
  Receipt Date: 20060224
  Transmission Date: 20060701
  Serious: Yes (Death, Hospitalization)
  Sender: FDA-Public Use
  Company Number: US-SANOFI-SYNTHELABO-A03200601050

PATIENT
  Sex: Female
  Weight: 63.49 kg

DRUGS (3)
  1. PLAVIX [Suspect]
     Indication: CEREBROVASCULAR ACCIDENT
     Route: 048
  2. TOPROL [Concomitant]
     Route: 048
  3. VALIUM [Concomitant]
     Route: 048

REACTIONS (4)
  - GASTRIC ULCER PERFORATION [None]
  - HYPERTENSION [None]
  - PERITONITIS [None]
  - SEPSIS [None]
